FAERS Safety Report 7572754-7 (Version None)
Quarter: 2011Q2

REPORT INFORMATION
  Report Type: 
  Country: None (occurrence: None)
  Receive Date: 20110627
  Receipt Date: 20110423
  Transmission Date: 20111010
  Serious: Yes (Other)
  Sender: FDA-Public Use
  Company Number: SE-JNJFOC-20110411104

PATIENT
  Sex: Female

DRUGS (2)
  1. RITALIN [Concomitant]
     Route: 065
  2. CONCERTA [Suspect]
     Indication: ATTENTION DEFICIT/HYPERACTIVITY DISORDER
     Route: 048

REACTIONS (2)
  - FORMICATION [None]
  - PSYCHOMOTOR HYPERACTIVITY [None]
